FAERS Safety Report 24645615 (Version 8)
Quarter: 2024Q4

REPORT INFORMATION
  Report Type: Spontaneous
  Country: IL (occurrence: IL)
  Receive Date: 20241121
  Receipt Date: 20241223
  Transmission Date: 20250114
  Serious: Yes (Hospitalization, Other)
  Sender: BAXTER
  Company Number: IL-BAXTER-2024BAX027826

PATIENT
  Age: 59 Year
  Sex: Male
  Weight: 88.8 kg

DRUGS (57)
  1. DOXORUBICIN [Suspect]
     Active Substance: DOXORUBICIN
     Indication: Diffuse large B-cell lymphoma stage IV
     Dosage: 50 MG/M2, C1D1, FORMULATION: SOLUTION FOR INFUSION, AS A PART OF R-CHOP REGIMEN
     Route: 042
     Dates: start: 20241006, end: 20241006
  2. DOXORUBICIN [Suspect]
     Active Substance: DOXORUBICIN
     Dosage: 50 MG/M2, C2D1, FORMULATION: SOLUTION FOR INFUSION, AS A PART OF R-CHOP REGIMEN
     Route: 042
     Dates: start: 20241117, end: 20241117
  3. CYCLOPHOSPHAMIDE [Suspect]
     Active Substance: CYCLOPHOSPHAMIDE
     Indication: Diffuse large B-cell lymphoma stage IV
     Dosage: 750 MG/M2, C1D1, FORMULATION: POWDER FOR SOLUTION FOR INJECTION, AS A PART OF R-CHOP REGIMEN
     Route: 042
     Dates: start: 20241006, end: 20241006
  4. CYCLOPHOSPHAMIDE [Suspect]
     Active Substance: CYCLOPHOSPHAMIDE
     Dosage: 750 MG/M2, C2D1, FORMULATION: POWDER FOR SOLUTION FOR INJECTION, AS A PART OF R-CHOP REGIMEN
     Route: 042
     Dates: start: 20241117, end: 20241117
  5. RITUXIMAB [Suspect]
     Active Substance: RITUXIMAB
     Indication: Diffuse large B-cell lymphoma stage IV
     Dosage: 375 MG/M2, C1D1, AS A PART OF R-CHOP REGIMEN
     Route: 042
     Dates: start: 20241006, end: 20241006
  6. RITUXIMAB [Suspect]
     Active Substance: RITUXIMAB
     Dosage: 375 MG/M2, C2D1, AS A PART OF R-CHOP REGIMEN
     Route: 042
     Dates: start: 20241117, end: 20241117
  7. VINCRISTINE [Suspect]
     Active Substance: VINCRISTINE
     Indication: Diffuse large B-cell lymphoma stage IV
     Dosage: 1.4 MG/M2, C1D1, AS A PART OF R-CHOP REGIMEN
     Route: 042
     Dates: start: 20241006, end: 20241006
  8. VINCRISTINE [Suspect]
     Active Substance: VINCRISTINE
     Dosage: 1.4 MG/M2, C2D1, AS A PART OF R-CHOP REGIMEN
     Route: 042
     Dates: start: 20241117, end: 20241117
  9. PREDNISONE [Suspect]
     Active Substance: PREDNISONE
     Indication: Diffuse large B-cell lymphoma stage IV
     Dosage: 100 MG/DAY, TOTAL, C1D1, AS A PART OF R-CHOP REGIMEN
     Route: 048
     Dates: start: 20241006, end: 20241006
  10. PREDNISONE [Suspect]
     Active Substance: PREDNISONE
     Dosage: 100 MG/DAY, TOTAL, RE-PRIME1 DAY 8 (RP1D8), AS A PART OF R-CHOP REGIMEN
     Route: 048
     Dates: start: 20241027, end: 20241027
  11. PREDNISONE [Suspect]
     Active Substance: PREDNISONE
     Dosage: 100 MG, TOTAL, C2D1
     Route: 048
     Dates: start: 20241117, end: 20241117
  12. PREDNISONE [Suspect]
     Active Substance: PREDNISONE
     Dosage: 100 MG, QD, TOTAL
     Route: 048
     Dates: start: 20241118, end: 20241121
  13. PREDNISONE [Suspect]
     Active Substance: PREDNISONE
     Dosage: 100 MG
     Route: 065
     Dates: start: 20241121
  14. EPCORITAMAB [Suspect]
     Active Substance: EPCORITAMAB
     Indication: Diffuse large B-cell lymphoma stage IV
     Dosage: 0.16 MG PRIMING DOSE ON C1D1
     Route: 058
     Dates: start: 20241006, end: 20241006
  15. EPCORITAMAB [Suspect]
     Active Substance: EPCORITAMAB
     Dosage: RE-PRIMING DOSE OF 0.16 MG, RP1D1
     Route: 058
     Dates: start: 20241020, end: 20241020
  16. EPCORITAMAB [Suspect]
     Active Substance: EPCORITAMAB
     Dosage: 0.8 MG INTERMEDIATE DOSE ON C1D8, RE-PRIME1 DAY 8 (RP1D8)
     Route: 058
     Dates: start: 20241027, end: 20241027
  17. EPCORITAMAB [Suspect]
     Active Substance: EPCORITAMAB
     Dosage: 48 MG: CYCLE 1 TO CYCLE 6, R-CHOP ON 3-WEEK CYCLE (21 DAYS) (DAY 1)
     Route: 058
     Dates: start: 20241110, end: 20241110
  18. EPCORITAMAB [Suspect]
     Active Substance: EPCORITAMAB
     Dosage: RP1D15- C2D1
     Route: 058
     Dates: start: 20241110, end: 20241117
  19. EPCORITAMAB [Suspect]
     Active Substance: EPCORITAMAB
     Dosage: 48 MG, C2D1
     Route: 058
     Dates: start: 20241117, end: 20241117
  20. PROMETHAZINE [Concomitant]
     Active Substance: PROMETHAZINE HYDROCHLORIDE
     Indication: Premedication
     Dosage: 12.5 MG
     Route: 048
     Dates: start: 20241027, end: 20241027
  21. PROMETHAZINE [Concomitant]
     Active Substance: PROMETHAZINE HYDROCHLORIDE
     Dosage: 12.5 MG
     Route: 048
     Dates: start: 20241117, end: 20241117
  22. ACETAMINOPHEN [Concomitant]
     Active Substance: ACETAMINOPHEN
     Indication: Premedication
     Dosage: UNK
     Route: 065
     Dates: start: 20241027, end: 20241027
  23. ACETAMINOPHEN [Concomitant]
     Active Substance: ACETAMINOPHEN
     Dosage: 1000 MG
     Route: 048
     Dates: start: 20241110
  24. ACETAMINOPHEN [Concomitant]
     Active Substance: ACETAMINOPHEN
     Dosage: 1000 MG
     Route: 048
     Dates: start: 20241117, end: 20241117
  25. DIAZEPAM\ISOPROPAMIDE IODIDE [Concomitant]
     Active Substance: DIAZEPAM\ISOPROPAMIDE IODIDE
     Dosage: UNK, ONGOING
     Route: 065
     Dates: start: 20240320
  26. ALLOPURINOL [Concomitant]
     Active Substance: ALLOPURINOL
     Dosage: UNK, ONGOING
     Route: 065
     Dates: start: 20241001, end: 20241101
  27. SODIUM CHLORIDE [Concomitant]
     Active Substance: SODIUM CHLORIDE
     Dosage: UNK
     Route: 065
     Dates: start: 20241006, end: 20241006
  28. SODIUM CHLORIDE [Concomitant]
     Active Substance: SODIUM CHLORIDE
     Dosage: UNK
     Route: 065
     Dates: start: 20241103, end: 20241202
  29. FULPHILA [Concomitant]
     Active Substance: PEGFILGRASTIM-JMDB
     Dosage: UNK
     Route: 065
     Dates: start: 20241008, end: 20241029
  30. FULPHILA [Concomitant]
     Active Substance: PEGFILGRASTIM-JMDB
     Dosage: UNK
     Route: 065
     Dates: start: 20241119, end: 20241119
  31. AKYNZEO [Concomitant]
     Dosage: UNK
     Route: 065
     Dates: start: 20241006, end: 20241006
  32. AKYNZEO [Concomitant]
     Dosage: UNK
     Route: 065
     Dates: start: 20241117, end: 20241117
  33. MAGNESIUM SULFATE [Concomitant]
     Active Substance: MAGNESIUM SULFATE
     Indication: Supportive care
     Dosage: UNK
     Route: 065
     Dates: start: 20241103, end: 20241104
  34. MAGNESIUM SULFATE [Concomitant]
     Active Substance: MAGNESIUM SULFATE
     Dosage: UNK
     Route: 065
     Dates: start: 20241103, end: 20241201
  35. MAGNESIUM SULFATE [Concomitant]
     Active Substance: MAGNESIUM SULFATE
     Dosage: 5 GRAM, ONCE
     Route: 042
     Dates: start: 20241111
  36. NOVORAPID [Concomitant]
     Active Substance: INSULIN ASPART
     Dosage: UNK, ONGOING
     Route: 065
     Dates: start: 20241103, end: 20241106
  37. POTASSIUM CHLORIDE [Concomitant]
     Active Substance: POTASSIUM CHLORIDE
     Indication: Supportive care
     Dosage: ONGOING
     Route: 065
     Dates: start: 20241104, end: 20241106
  38. SOPA K [Concomitant]
     Indication: Supportive care
     Dosage: UNK
     Route: 065
     Dates: start: 20241103, end: 20241103
  39. GRANISETRON [Concomitant]
     Active Substance: GRANISETRON
     Indication: Nausea
     Dosage: UNK
     Route: 065
     Dates: start: 20241103, end: 20241106
  40. LACTATED RINGERS SOLUTION [Concomitant]
     Active Substance: CALCIUM CHLORIDE\POTASSIUM CHLORIDE\SODIUM CHLORIDE\SODIUM LACTATE
     Dosage: UNK
     Route: 065
     Dates: start: 20241104, end: 20241104
  41. DIPYRONE [Concomitant]
     Active Substance: DIPYRONE
     Dosage: UNK
     Route: 065
     Dates: start: 20241106, end: 20241106
  42. KONAKION [Concomitant]
     Active Substance: PHYTONADIONE
     Dosage: UNK
     Route: 065
     Dates: start: 20241111, end: 20241111
  43. HUMAN RED BLOOD CELL [Concomitant]
     Active Substance: HUMAN RED BLOOD CELL
     Dosage: TRANSFUSION OF PACKED RED BLOOD CELLS (250 ML, IV)
     Route: 042
     Dates: start: 20241105, end: 20241106
  44. HUMAN RED BLOOD CELL [Concomitant]
     Active Substance: HUMAN RED BLOOD CELL
     Dosage: TRANSFUSION OF PACKED RED BLOOD CELLS (250 ML, IV)
     Route: 042
     Dates: start: 20241106
  45. PIPERACILLIN SODIUM\TAZOBACTAM SODIUM [Concomitant]
     Active Substance: PIPERACILLIN SODIUM\TAZOBACTAM SODIUM
     Dosage: UNK
     Route: 065
     Dates: start: 20241103, end: 20241111
  46. ACETAMINOPHEN [Concomitant]
     Active Substance: ACETAMINOPHEN
     Dosage: UNK
     Route: 065
     Dates: start: 20241103, end: 20241103
  47. TOCILIZUMAB [Concomitant]
     Active Substance: TOCILIZUMAB
     Dosage: UNK
     Route: 065
     Dates: start: 20241111, end: 20241111
  48. METFORMIN [Concomitant]
     Active Substance: METFORMIN HYDROCHLORIDE
     Dosage: UNK, ONGOING
     Route: 065
     Dates: start: 20241117
  49. MAGNESIUM [Concomitant]
     Active Substance: MAGNESIUM
     Dosage: UNK
     Route: 065
     Dates: start: 20241124, end: 20241124
  50. FUROSEMIDE [Concomitant]
     Active Substance: FUROSEMIDE
     Dosage: UNK
     Route: 065
     Dates: start: 20241128, end: 20241128
  51. TAMSULOSIN HYDROCHLORIDE [Concomitant]
     Active Substance: TAMSULOSIN HYDROCHLORIDE
     Dosage: UNK; ONGOING
     Route: 065
     Dates: start: 20241128
  52. Calciless [Concomitant]
     Dosage: UNK; ONGOING
     Route: 065
     Dates: start: 20241130, end: 20241130
  53. PREDNISONE [Concomitant]
     Active Substance: PREDNISONE
     Dosage: UNK
     Route: 065
     Dates: start: 20241201, end: 20241203
  54. DEXAMETHASONE [Concomitant]
     Active Substance: DEXAMETHASONE
     Indication: Prophylaxis
     Dosage: 16 MG
     Route: 048
     Dates: start: 20241020, end: 20241023
  55. DEXAMETHASONE [Concomitant]
     Active Substance: DEXAMETHASONE
     Dosage: 16 MG
     Route: 048
     Dates: start: 20241110, end: 20241110
  56. DEXAMETHASONE [Concomitant]
     Active Substance: DEXAMETHASONE
     Dosage: UNK
     Route: 065
     Dates: start: 20241111, end: 20241113
  57. LORATADINE [Concomitant]
     Active Substance: LORATADINE
     Dosage: UNK
     Route: 065
     Dates: start: 20241202, end: 20241202

REACTIONS (14)
  - Cytokine release syndrome [Recovered/Resolved]
  - Pyrexia [Recovered/Resolved]
  - Immune effector cell-associated neurotoxicity syndrome [Recovered/Resolved]
  - Confusional state [Recovered/Resolved]
  - Urinary retention [Unknown]
  - Febrile neutropenia [Recovered/Resolved]
  - Pyrexia [Not Recovered/Not Resolved]
  - Sepsis [Recovered/Resolved]
  - Anal fistula [Unknown]
  - Hydrocele [Unknown]
  - Disease progression [Unknown]
  - Nausea [Recovered/Resolved]
  - Diarrhoea [Recovered/Resolved]
  - Vomiting [Recovered/Resolved]

NARRATIVE: CASE EVENT DATE: 20241101
